FAERS Safety Report 6329857-4 (Version None)
Quarter: 2009Q3

REPORT INFORMATION
  Report Type: 
  Country: None (occurrence: None)
  Receive Date: 20090826
  Receipt Date: 20090820
  Transmission Date: 20100115
  Serious: Yes (Death)
  Sender: FDA-Public Use
  Company Number: PHHO2009TR10465

PATIENT
  Sex: Male
  Weight: 83.5 kg

DRUGS (1)
  1. RAD 666 RAD+TAB [Suspect]
     Indication: METASTATIC RENAL CELL CARCINOMA
     Dosage: UNK

REACTIONS (1)
  - DEATH [None]
